FAERS Safety Report 9651480 (Version 2)
Quarter: 2013Q4

REPORT INFORMATION
  Report Type: Spontaneous
  Country: DE (occurrence: DE)
  Receive Date: 20131029
  Receipt Date: 20131029
  Transmission Date: 20140711
  Serious: Yes (Death, Other)
  Sender: FDA-Public Use
  Company Number: DE-JNJFOC-20131011868

PATIENT
  Age: 83 Year
  Sex: Female
  Weight: 81 kg

DRUGS (6)
  1. XARELTO [Suspect]
     Indication: THROMBOSIS PROPHYLAXIS
     Route: 048
     Dates: start: 20130905, end: 20130910
  2. KARVEZIDE [Concomitant]
     Route: 065
  3. BISOPROLOL [Concomitant]
     Route: 065
  4. AMLODIPINE [Concomitant]
     Route: 065
  5. MOXONIDIN [Concomitant]
     Route: 065
  6. IBU [Concomitant]
     Route: 065

REACTIONS (2)
  - Haematoma [Fatal]
  - Oedema peripheral [Fatal]
